FAERS Safety Report 6519507-6 (Version None)
Quarter: 2009Q4

REPORT INFORMATION
  Report Type: 
  Country: None (occurrence: None)
  Receive Date: 20091228
  Receipt Date: 20091217
  Transmission Date: 20100525
  Serious: Yes (Hospitalization)
  Sender: FDA-Public Use
  Company Number: DE-ROCHE-598812

PATIENT
  Sex: Female
  Weight: 55 kg

DRUGS (2)
  1. CAPECITABINE [Suspect]
     Indication: COLORECTAL CANCER
     Route: 065
  2. IRINOTECAN HCL [Suspect]
     Indication: COLORECTAL CANCER
     Route: 042
     Dates: start: 20081001

REACTIONS (1)
  - AORTIC STENOSIS [None]
